FAERS Safety Report 23742864 (Version 1)
Quarter: 2024Q2

REPORT INFORMATION
  Report Type: Report from Study
  Country: ZA (occurrence: None)
  Receive Date: 20240415
  Receipt Date: 20240415
  Transmission Date: 20240715
  Serious: Yes (Death)
  Sender: FDA-Public Use
  Company Number: 2019SF35479

PATIENT
  Sex: Female

DRUGS (5)
  1. ROSUVASTATIN [Suspect]
     Active Substance: ROSUVASTATIN
     Indication: Blood cholesterol
     Dosage: 10 MG, UNKNOWN
     Route: 048
     Dates: end: 201908
  2. ECOTRIN [Concomitant]
     Active Substance: ASPIRIN
     Route: 048
     Dates: end: 201908
  3. AUSTELL LISINOPRIL [Concomitant]
     Route: 048
     Dates: end: 201908
  4. AMLODIPINE BESYLATE [Concomitant]
     Active Substance: AMLODIPINE BESYLATE
     Route: 048
     Dates: end: 201908
  5. NITRAZEPAM [Concomitant]
     Active Substance: NITRAZEPAM
     Route: 048
     Dates: end: 201908

REACTIONS (1)
  - Death [Fatal]
